FAERS Safety Report 23668005 (Version 1)
Quarter: 2024Q1

REPORT INFORMATION
  Report Type: Other
  Country: CA (occurrence: CA)
  Receive Date: 20240325
  Receipt Date: 20240325
  Transmission Date: 20240410
  Serious: No
  Sender: FDA-Public Use
  Company Number: CA-TOLMAR, INC.-24CA047020

PATIENT
  Age: 91 Year
  Sex: Male

DRUGS (2)
  1. ELIGARD [Suspect]
     Active Substance: LEUPROLIDE ACETATE
     Indication: Prostate cancer
     Dosage: 22.5 MILLIGRAM, Q 3 MONTH
     Route: 058
     Dates: start: 20240212
  2. ELIGARD [Suspect]
     Active Substance: LEUPROLIDE ACETATE
     Indication: Prostate cancer
     Dosage: UNK

REACTIONS (6)
  - Chromaturia [Unknown]
  - Urine odour abnormal [Unknown]
  - Urinary tract infection [Unknown]
  - Dysuria [Unknown]
  - Pollakiuria [Unknown]
  - Micturition urgency [Unknown]

NARRATIVE: CASE EVENT DATE: 20240201
